FAERS Safety Report 23415151 (Version 1)
Quarter: 2024Q1

REPORT INFORMATION
  Report Type: Spontaneous
  Country: US (occurrence: None)
  Receive Date: 20240118
  Receipt Date: 20240118
  Transmission Date: 20240409
  Serious: Yes (Other)
  Sender: FDA-Public Use
  Company Number: US-ROCHE-3490008

PATIENT
  Sex: Female
  Weight: 76.726 kg

DRUGS (4)
  1. HERCEPTIN [Suspect]
     Active Substance: TRASTUZUMAB
     Indication: Adenocarcinoma of the cervix
     Route: 041
     Dates: start: 202210
  2. METOPROLOL SUCCINATE [Suspect]
     Active Substance: METOPROLOL SUCCINATE
     Indication: Cardiotoxicity
     Route: 048
     Dates: start: 20231204
  3. AVASTIN [Suspect]
     Active Substance: BEVACIZUMAB
     Indication: Product used for unknown indication
     Route: 042
     Dates: start: 202210
  4. VALSARTAN [Concomitant]
     Active Substance: VALSARTAN
     Route: 048
     Dates: start: 20231228

REACTIONS (6)
  - Electric shock sensation [Unknown]
  - Protein urine present [Not Recovered/Not Resolved]
  - Insomnia [Recovered/Resolved]
  - Cardiac flutter [Not Recovered/Not Resolved]
  - Reading disorder [Unknown]
  - Off label use [Unknown]

NARRATIVE: CASE EVENT DATE: 20231201
